FAERS Safety Report 6752724-9 (Version None)
Quarter: 2010Q2

REPORT INFORMATION
  Report Type: 
  Country: None (occurrence: None)
  Receive Date: 20100528
  Receipt Date: 20100422
  Transmission Date: 20101027
  Serious: Yes (Hospitalization)
  Sender: FDA-Public Use
  Company Number: 1-17293876

PATIENT
  Age: 64 Year
  Sex: Male

DRUGS (11)
  1. QUININE (MANUFACTURER UNKNOWN) [Suspect]
     Indication: MUSCLE SPASMS
     Dosage: ORAL
     Route: 048
     Dates: start: 20060602, end: 20080829
  2. TOPROL-XL [Concomitant]
  3. TRAMADOL HCL [Concomitant]
  4. METHOTREXATE [Concomitant]
  5. HUMIRA [Concomitant]
  6. AUGMENTIN (AMOXICILLIN CLAVULANATE) [Concomitant]
  7. SIMVASTATIN [Concomitant]
  8. METOPROLOL TARTRATE [Concomitant]
  9. NEXIUM [Concomitant]
  10. NEURONTIN [Concomitant]
  11. ALBUTEROL [Concomitant]

REACTIONS (8)
  - ANAEMIA [None]
  - BACK DISORDER [None]
  - BLOOD DISORDER [None]
  - CARBON MONOXIDE POISONING [None]
  - COAGULOPATHY [None]
  - DRUG HYPERSENSITIVITY [None]
  - MULTIPLE INJURIES [None]
  - UNEVALUABLE EVENT [None]
